FAERS Safety Report 21908071 (Version 1)
Quarter: 2023Q1

REPORT INFORMATION
  Report Type: Report from Study
  Country: US (occurrence: US)
  Receive Date: 20230125
  Receipt Date: 20230125
  Transmission Date: 20230417
  Serious: Yes (Other)
  Sender: FDA-Public Use
  Company Number: US-drreddys-SPO/USA/23/0160118

PATIENT
  Age: 72 Year
  Sex: Female
  Weight: 85.2 kg

DRUGS (1)
  1. SAPROPTERIN DIHYDROCHLORIDE [Suspect]
     Active Substance: SAPROPTERIN DIHYDROCHLORIDE
     Indication: Amino acid level increased
     Route: 048
     Dates: start: 20221014

REACTIONS (1)
  - Surgery [Recovered/Resolved]
